FAERS Safety Report 9701758 (Version 1)
Quarter: 2013Q4

REPORT INFORMATION
  Report Type: Spontaneous
  Country: US (occurrence: US)
  Receive Date: 20131121
  Receipt Date: 20131121
  Transmission Date: 20140711
  Serious: Yes (Other)
  Sender: FDA-Public Use
  Company Number: US-PFIZER INC-2013330419

PATIENT
  Age: 53 Year
  Sex: Female

DRUGS (7)
  1. PREMARIN [Suspect]
     Dosage: 0.625 MG, 1X/DAY
  2. PROMETRIUM [Suspect]
     Dosage: 100 MG, 1X/DAY
  3. SYNTHROID [Suspect]
     Dosage: 100 UG, 1X/DAY
  4. ATENOLOL [Concomitant]
     Dosage: 25 MG, UNK
  5. LEVOTHYROXINE [Concomitant]
     Dosage: 100 UG, UNK
  6. CYMBALTA [Concomitant]
     Dosage: 60 MG, UNK
  7. NADOLOL [Concomitant]
     Dosage: 20 MG, 1X/DAY

REACTIONS (3)
  - Limb injury [Unknown]
  - Impaired healing [Unknown]
  - Joint injury [Recovered/Resolved]
